FAERS Safety Report 21043266 (Version 1)
Quarter: 2022Q3

REPORT INFORMATION
  Report Type: Spontaneous
  Country: US (occurrence: None)
  Receive Date: 20220704
  Receipt Date: 20220704
  Transmission Date: 20221027
  Serious: Yes (Disabling)
  Sender: FDA-Public Use
  Company Number: None

PATIENT
  Age: 38 Year
  Sex: Female

DRUGS (4)
  1. SECRET CLINICAL STRENGTH CLEAR CLEAN LAVENDER [Suspect]
     Active Substance: ALUMINUM ZIRCONIUM OCTACHLOROHYDREX GLY
     Indication: Hyperhidrosis
     Dosage: FREQUENCY : DAILY;?
     Route: 061
     Dates: end: 20220629
  2. SECRET CLINICAL STRENGTH CLEAR CLEAN LAVENDER [Suspect]
     Active Substance: ALUMINUM ZIRCONIUM OCTACHLOROHYDREX GLY
     Indication: Skin odour abnormal
  3. SECRET CLINICAL STRENGTH STRESS RESPONSE SERENE CITRUS SCENT [Suspect]
     Active Substance: ALUMINUM ZIRCONIUM TRICHLOROHYDREX GLY
     Indication: Hyperhidrosis
     Dosage: FREQUENCY : DAILY;?
     Route: 061
     Dates: end: 20220629
  4. SECRET CLINICAL STRENGTH STRESS RESPONSE SERENE CITRUS SCENT [Suspect]
     Active Substance: ALUMINUM ZIRCONIUM TRICHLOROHYDREX GLY
     Indication: Skin odour abnormal

REACTIONS (5)
  - Axillary pain [None]
  - Erythema [None]
  - Rash [None]
  - Chemical burn [None]
  - Product formulation issue [None]
